FAERS Safety Report 19879433 (Version 1)
Quarter: 2021Q3

REPORT INFORMATION
  Report Type: Spontaneous
  Country: US (occurrence: US)
  Receive Date: 20210923
  Receipt Date: 20210923
  Transmission Date: 20211014
  Serious: Yes (Hospitalization)
  Sender: FDA-Public Use
  Company Number: None

PATIENT
  Age: 30 Year
  Sex: Female

DRUGS (1)
  1. MAKENA [Suspect]
     Active Substance: HYDROXYPROGESTERONE CAPROATE
     Indication: PREMATURE LABOUR
     Dosage: OTHER FREQUENCY:Q7 DAYS ;?
     Route: 058
     Dates: start: 20210525, end: 20210822

REACTIONS (1)
  - Delivery [None]

NARRATIVE: CASE EVENT DATE: 20210822
